FAERS Safety Report 14616195 (Version 1)
Quarter: 2018Q1

REPORT INFORMATION
  Report Type: Spontaneous
  Country: FR (occurrence: FR)
  Receive Date: 20180309
  Receipt Date: 20180309
  Transmission Date: 20180509
  Serious: Yes (Other)
  Sender: FDA-Public Use
  Company Number: FR-MERCK KGAA-2043403

PATIENT
  Sex: Female
  Weight: 52 kg

DRUGS (5)
  1. NOVOTHYROX [Suspect]
     Active Substance: LEVOTHYROXINE SODIUM
     Indication: THYROIDECTOMY
     Dates: start: 20170208
  2. LEVOTHYROX 100 [Suspect]
     Active Substance: LEVOTHYROXINE SODIUM
     Dates: start: 20171004
  3. LEVOTHYROX 100 NF [Suspect]
     Active Substance: LEVOTHYROXINE SODIUM
     Dates: start: 20170717
  4. LEVOTHYROX NF 125 [Suspect]
     Active Substance: LEVOTHYROXINE SODIUM
     Dates: start: 20170717
  5. DOLIPRANE [Concomitant]
     Active Substance: ACETAMINOPHEN

REACTIONS (16)
  - Asthenia [None]
  - Fatigue [Not Recovered/Not Resolved]
  - Alopecia [None]
  - Muscle spasms [None]
  - Nausea [None]
  - Sleep disorder [None]
  - Impaired work ability [None]
  - Dizziness [None]
  - Hot flush [None]
  - Migraine [None]
  - Mental impairment [None]
  - Balance disorder [None]
  - Depression [None]
  - Eye irritation [None]
  - Pain [None]
  - Gastrointestinal disorder [None]

NARRATIVE: CASE EVENT DATE: 2017
